FAERS Safety Report 4830327-0 (Version None)
Quarter: 2005Q4

REPORT INFORMATION
  Report Type: 
  Country: None (occurrence: None)
  Receive Date: 20051114
  Receipt Date: 20051103
  Transmission Date: 20060501
  Serious: Yes (Other)
  Sender: FDA-Public Use
  Company Number: USA0511112687

PATIENT
  Age: 45 Year
  Sex: Female

DRUGS (4)
  1. CYMBALTA [Suspect]
     Indication: DEPRESSION
     Dosage: 60 MG DAY
     Dates: start: 20050101, end: 20051001
  2. STRATTERA [Suspect]
     Dosage: 80 MG DAY
     Dates: start: 20050101
  3. FLUOXETINE [Concomitant]
  4. PROZAC [Suspect]
     Indication: BIPOLAR DISORDER
     Dosage: 40 MG DAY
     Dates: start: 20030101, end: 20050101

REACTIONS (6)
  - AMNESIA [None]
  - ATROPHY [None]
  - CONVULSION [None]
  - DEPRESSION [None]
  - DISTURBANCE IN ATTENTION [None]
  - MIGRAINE [None]
